FAERS Safety Report 7297113-6 (Version None)
Quarter: 2011Q1

REPORT INFORMATION
  Report Type: 
  Country: None (occurrence: None)
  Receive Date: 20110216
  Receipt Date: 20110214
  Transmission Date: 20110831
  Serious: No
  Sender: FDA-Public Use
  Company Number: US-PFIZER INC-2011032386

PATIENT
  Sex: Female
  Weight: 86.168 kg

DRUGS (1)
  1. ADVIL [Suspect]
     Indication: NASAL CONGESTION
     Dosage: UNK
     Dates: start: 20110213

REACTIONS (1)
  - RASH [None]
